FAERS Safety Report 7843252-8 (Version None)
Quarter: 2011Q4

REPORT INFORMATION
  Report Type: 
  Country: None (occurrence: None)
  Receive Date: 20111025
  Receipt Date: 20111020
  Transmission Date: 20120403
  Serious: No
  Sender: FDA-Public Use
  Company Number: US-PFIZER INC-2011254289

PATIENT
  Sex: Male
  Weight: 10.4 kg

DRUGS (1)
  1. PEDIATRIC ADVIL [Suspect]
     Indication: PHARYNGITIS
     Dosage: 1.875, 2X/DAY
     Route: 065
     Dates: start: 20111014, end: 20111018

REACTIONS (2)
  - HYPERSENSITIVITY [None]
  - ABDOMINAL PAIN [None]
